FAERS Safety Report 18253787 (Version 1)
Quarter: 2020Q3

REPORT INFORMATION
  Report Type: Spontaneous
  Country: FR (occurrence: FR)
  Receive Date: 20200910
  Receipt Date: 20200910
  Transmission Date: 20201103
  Serious: Yes (Death)
  Sender: FDA-Public Use
  Company Number: FR-BAYER-2020-185341

PATIENT
  Age: 85 Year
  Sex: Female
  Weight: 56.5 kg

DRUGS (3)
  1. FLAGYL [METRONIDAZOLE BENZOATE] [Suspect]
     Active Substance: METRONIDAZOLE BENZOATE
     Indication: DIVERTICULITIS
     Dosage: 1500 MG, QD
     Route: 048
     Dates: start: 20200507, end: 20200522
  2. CIPROFLOXACIN. [Suspect]
     Active Substance: CIPROFLOXACIN
     Indication: DIVERTICULITIS
     Dosage: 1000 MG, QD
     Route: 048
     Dates: start: 20200507, end: 20200522
  3. ROCEPHINE [Suspect]
     Active Substance: CEFTRIAXONE SODIUM
     Indication: DIVERTICULITIS
     Dosage: UNK
     Route: 042
     Dates: start: 20200518, end: 20200522

REACTIONS (1)
  - Encephalopathy [Fatal]

NARRATIVE: CASE EVENT DATE: 20200523
